FAERS Safety Report 17129467 (Version 1)
Quarter: 2019Q4

REPORT INFORMATION
  Report Type: Spontaneous
  Country: AT (occurrence: AT)
  Receive Date: 20191209
  Receipt Date: 20191209
  Transmission Date: 20200122
  Serious: Yes (Other)
  Sender: FDA-Public Use
  Company Number: AT-MYLANLABS-2019M1119555

PATIENT
  Sex: Male

DRUGS (22)
  1. RALTEGRAVIR. [Suspect]
     Active Substance: RALTEGRAVIR
     Dosage: UNK
     Dates: start: 20151125, end: 20181108
  2. ABACAVIR                           /01401602/ [Suspect]
     Active Substance: ABACAVIR SULFATE
     Dosage: UNK
     Dates: start: 20140606, end: 20151105
  3. EFAVIRENZ. [Suspect]
     Active Substance: EFAVIRENZ
     Dosage: UNK
     Dates: start: 20121203, end: 20140606
  4. LAMIVUDINE. [Suspect]
     Active Substance: LAMIVUDINE
     Dosage: UNK
     Dates: start: 20151125
  5. DARUNAVIR [Suspect]
     Active Substance: DARUNAVIR
     Indication: ANTIRETROVIRAL THERAPY
     Dosage: UNK
     Dates: start: 20111107, end: 20120419
  6. TENOFOVIR [Suspect]
     Active Substance: TENOFOVIR
     Indication: ANTIRETROVIRAL THERAPY
     Dosage: UNK
     Dates: start: 20040423, end: 201708
  7. TENOFOVIR [Suspect]
     Active Substance: TENOFOVIR
     Dosage: UNK
     Dates: start: 20111107, end: 20140606
  8. LAMIVUDINE. [Suspect]
     Active Substance: LAMIVUDINE
     Dosage: UNK
     Dates: start: 20140606, end: 20151105
  9. LOPINAVIR [Suspect]
     Active Substance: LOPINAVIR
     Indication: ANTIRETROVIRAL THERAPY
     Dosage: UNK
     Dates: start: 20031107, end: 20040423
  10. AZIDOTHYMIDINE [Suspect]
     Active Substance: ZIDOVUDINE
     Indication: ANTIRETROVIRAL THERAPY
     Dosage: UNK
     Dates: start: 20031107, end: 20040423
  11. ABACAVIR                           /01401602/ [Suspect]
     Active Substance: ABACAVIR SULFATE
     Dosage: UNK
     Dates: start: 20151125, end: 20181108
  12. NEVIRAPINE. [Suspect]
     Active Substance: NEVIRAPINE
     Indication: ANTIRETROVIRAL THERAPY
     Dosage: UNK
     Dates: start: 20120419, end: 20121203
  13. EFAVIRENZ. [Suspect]
     Active Substance: EFAVIRENZ
     Indication: ANTIRETROVIRAL THERAPY
     Dosage: UNK
     Dates: start: 20040423, end: 20111107
  14. ABACAVIR                           /01401602/ [Suspect]
     Active Substance: ABACAVIR SULFATE
     Indication: ANTIRETROVIRAL THERAPY
     Dosage: UNK
     Dates: start: 200708, end: 20111107
  15. RITONAVIR. [Suspect]
     Active Substance: RITONAVIR
     Indication: ANTIRETROVIRAL THERAPY
     Dosage: UNK
     Dates: start: 20031107, end: 20040423
  16. RALTEGRAVIR. [Suspect]
     Active Substance: RALTEGRAVIR
     Indication: ANTIRETROVIRAL THERAPY
     Dosage: UNK
     Dates: start: 20140821, end: 20151105
  17. ABACAVIR W/DOLUTEGRAVIR/LAMIVUDINE [Suspect]
     Active Substance: ABACAVIR SULFATE\DOLUTEGRAVIR SODIUM\LAMIVUDINE
     Indication: ANTIRETROVIRAL THERAPY
     Dosage: UNK
     Dates: start: 20151105, end: 20151125
  18. LAMIVUDINE. [Suspect]
     Active Substance: LAMIVUDINE
     Indication: ANTIRETROVIRAL THERAPY
     Dosage: UNK
     Dates: start: 20031107, end: 20111107
  19. DOLUTEGRAVIR [Suspect]
     Active Substance: DOLUTEGRAVIR
     Indication: ANTIRETROVIRAL THERAPY
     Dosage: UNK
     Dates: start: 20140606, end: 20140821
  20. RITONAVIR. [Suspect]
     Active Substance: RITONAVIR
     Dosage: UNK
     Dates: start: 20111107, end: 20120419
  21. DOLUTEGRAVIR [Suspect]
     Active Substance: DOLUTEGRAVIR
     Dosage: UNK
     Dates: start: 20181108
  22. EMTRICITABINE [Suspect]
     Active Substance: EMTRICITABINE
     Indication: ANTIRETROVIRAL THERAPY
     Dosage: UNK
     Dates: start: 20111107, end: 20140606

REACTIONS (14)
  - Abnormal dreams [Recovered/Resolved]
  - Decreased appetite [Recovered/Resolved]
  - Erectile dysfunction [Unknown]
  - Hyperphagia [Unknown]
  - Depressed mood [Recovered/Resolved]
  - Vomiting [Recovered/Resolved]
  - Fatigue [Recovered/Resolved]
  - Asthenia [Recovered/Resolved]
  - Nausea [Recovered/Resolved]
  - Renal impairment [Unknown]
  - Weight increased [Unknown]
  - Dyspepsia [Recovered/Resolved]
  - Vertigo [Recovered/Resolved]
  - Diarrhoea [Recovered/Resolved]

NARRATIVE: CASE EVENT DATE: 2012
